FAERS Safety Report 13818082 (Version 1)
Quarter: 2017Q3

REPORT INFORMATION
  Report Type: Spontaneous
  Country: US (occurrence: US)
  Receive Date: 20170731
  Receipt Date: 20170731
  Transmission Date: 20171127
  Serious: No
  Sender: FDA-Public Use
  Company Number: US-ROCHE-624659

PATIENT
  Age: 83 Year
  Sex: Female

DRUGS (1)
  1. BONIVA [Suspect]
     Active Substance: IBANDRONATE SODIUM
     Indication: OSTEOPOROSIS
     Dosage: DOSE: 3MG/3ML, FORM: INJECTION, HAD RECEIVED ONLY ONE DOSE.
     Route: 042

REACTIONS (3)
  - Pollakiuria [Recovered/Resolved]
  - Haemorrhage urinary tract [Recovered/Resolved]
  - Urethral pain [Recovered/Resolved]

NARRATIVE: CASE EVENT DATE: 20090210
